FAERS Safety Report 6725391-8 (Version None)
Quarter: 2010Q2

REPORT INFORMATION
  Report Type: 
  Country: None (occurrence: None)
  Receive Date: 20100514
  Receipt Date: 20100504
  Transmission Date: 20101027
  Serious: Yes (Hospitalization)
  Sender: FDA-Public Use
  Company Number: DE-ABBOTT-10P-062-0642303-00

PATIENT
  Sex: Female

DRUGS (12)
  1. HUMIRA [Suspect]
     Indication: RHEUMATOID ARTHRITIS
     Dates: start: 20080401
  2. MARCUMAR [Concomitant]
     Indication: DRUG USE FOR UNKNOWN INDICATION
  3. DIGIMERCK [Concomitant]
     Indication: DRUG USE FOR UNKNOWN INDICATION
  4. LEVOTHYROXINE SODIUM [Concomitant]
     Indication: DRUG USE FOR UNKNOWN INDICATION
  5. JODID 200 [Concomitant]
     Indication: DRUG USE FOR UNKNOWN INDICATION
  6. CORAPROVEL [Concomitant]
     Indication: DRUG USE FOR UNKNOWN INDICATION
  7. METOHEXAL [Concomitant]
     Indication: DRUG USE FOR UNKNOWN INDICATION
  8. CARMEN [Concomitant]
     Indication: DRUG USE FOR UNKNOWN INDICATION
  9. CALCIUM [Concomitant]
     Indication: DRUG USE FOR UNKNOWN INDICATION
  10. MG [Concomitant]
     Indication: DRUG USE FOR UNKNOWN INDICATION
  11. VIT. B12 [Concomitant]
     Indication: DRUG USE FOR UNKNOWN INDICATION
  12. MORPHIUM PATCH [Concomitant]
     Indication: DRUG USE FOR UNKNOWN INDICATION
     Route: 062

REACTIONS (4)
  - ASTHENIA [None]
  - HAEMORRHAGE [None]
  - HAEMORRHOIDS [None]
  - POLYP [None]
